FAERS Safety Report 16559825 (Version 1)
Quarter: 2019Q3

REPORT INFORMATION
  Report Type: Spontaneous
  Country: FR (occurrence: FR)
  Receive Date: 20190711
  Receipt Date: 20190711
  Transmission Date: 20191004
  Serious: Yes (Hospitalization)
  Sender: FDA-Public Use
  Company Number: FR-SA-2019SA186789

PATIENT
  Age: 69 Year
  Sex: Male

DRUGS (9)
  1. RIFAMPICIN [Suspect]
     Active Substance: RIFAMPIN
     Indication: INTERVERTEBRAL DISCITIS
     Dosage: UNK
     Route: 048
     Dates: start: 20190613, end: 20190614
  2. OLUMIANT [Concomitant]
     Active Substance: BARICITINIB
  3. LOVENOX [Concomitant]
     Active Substance: ENOXAPARIN SODIUM
  4. SERTRALINE HCL [Concomitant]
     Active Substance: SERTRALINE HYDROCHLORIDE
  5. OFLOXACIN. [Suspect]
     Active Substance: OFLOXACIN
     Indication: INTERVERTEBRAL DISCITIS
     Dosage: UNK
     Route: 048
     Dates: start: 20190614, end: 20190614
  6. PREDNISOLONE. [Concomitant]
     Active Substance: PREDNISOLONE
  7. OXACILLIN SODIUM [Suspect]
     Active Substance: OXACILLIN SODIUM
     Indication: INTERVERTEBRAL DISCITIS
     Dosage: UNK
     Route: 042
     Dates: start: 20190609, end: 20190612
  8. GENTAMICIN SULFATE. [Suspect]
     Active Substance: GENTAMICIN SULFATE
     Indication: INTERVERTEBRAL DISCITIS
     Dosage: UNK
     Route: 042
     Dates: start: 20190609, end: 20190612
  9. KARDEGIC [Concomitant]
     Active Substance: ASPIRIN DL-LYSINE

REACTIONS (1)
  - Purpura [Recovered/Resolved]

NARRATIVE: CASE EVENT DATE: 20190614
